FAERS Safety Report 9166200 (Version 1)
Quarter: 2013Q1

REPORT INFORMATION
  Report Type: Spontaneous
  Country: JP (occurrence: JP)
  Receive Date: 20130315
  Receipt Date: 20130315
  Transmission Date: 20140127
  Serious: Yes (Other)
  Sender: FDA-Public Use
  Company Number: JP-BRISTOL-MYERS SQUIBB COMPANY-15011935

PATIENT
  Sex: 0

DRUGS (1)
  1. ABILIFY TABS [Suspect]
     Dosage: DOSE REDUCED TO 4.5 MG ONCE DAILY
     Route: 048

REACTIONS (2)
  - Dementia [Unknown]
  - Tremor [Unknown]
